FAERS Safety Report 19779230 (Version 2)
Quarter: 2021Q3

REPORT INFORMATION
  Report Type: Spontaneous
  Country: US (occurrence: US)
  Receive Date: 20210902
  Receipt Date: 20210913
  Transmission Date: 20211014
  Serious: Yes (Hospitalization)
  Sender: FDA-Public Use
  Company Number: US-TEVA-2021-US-1946929

PATIENT
  Age: 84 Year
  Sex: Female

DRUGS (6)
  1. SODIUM THIOSULFATE [Suspect]
     Active Substance: SODIUM THIOSULFATE
     Indication: CALCIPHYLAXIS
     Dosage: 25 G/DOSE THREE TIMES WEEKLY
     Route: 042
  2. PACLITAXEL. [Suspect]
     Active Substance: PACLITAXEL
     Indication: BREAST CANCER METASTATIC
     Route: 065
  3. RIVAROXABAN [Concomitant]
     Active Substance: RIVAROXABAN
     Indication: DEEP VEIN THROMBOSIS
     Route: 065
  4. ATEZOLIZUMAB. [Suspect]
     Active Substance: ATEZOLIZUMAB
     Indication: BREAST CANCER METASTATIC
     Route: 065
  5. DENOSUMAB [Concomitant]
     Active Substance: DENOSUMAB
     Indication: METASTASES TO BONE
     Route: 065
  6. SODIUM THIOSULFATE [Suspect]
     Active Substance: SODIUM THIOSULFATE
     Indication: CALCIPHYLAXIS
     Dosage: 250 MG/ML FOUR WEEKLY INJECTIONS
     Route: 026

REACTIONS (3)
  - Nausea [Unknown]
  - Vomiting [Unknown]
  - Calciphylaxis [Recovering/Resolving]
